FAERS Safety Report 13608137 (Version 1)
Quarter: 2017Q2

REPORT INFORMATION
  Report Type: Spontaneous
  Country: KR (occurrence: KR)
  Receive Date: 20170602
  Receipt Date: 20170602
  Transmission Date: 20170830
  Serious: Yes (Hospitalization)
  Sender: FDA-Public Use
  Company Number: KR-FTV20160809-01

PATIENT
  Age: 65 Year
  Sex: Female

DRUGS (3)
  1. FACTIVE [Suspect]
     Active Substance: GEMIFLOXACIN MESYLATE
     Indication: PNEUMONIA
     Route: 048
     Dates: start: 20160504
  2. METHYLPREDNISOLONE. [Concomitant]
     Active Substance: METHYLPREDNISOLONE
     Indication: ASTHMA
     Dates: start: 20160429
  3. FACTIVE INJ. [Concomitant]
     Indication: PNEUMONIA
     Dates: start: 20160429, end: 20160504

REACTIONS (8)
  - Refusal of treatment by patient [None]
  - Blood glucose increased [None]
  - Dyspepsia [None]
  - Pruritus [None]
  - Abdominal pain upper [None]
  - Rash [None]
  - Hypersensitivity [Recovered/Resolved]
  - Obstructive airways disorder [None]

NARRATIVE: CASE EVENT DATE: 20160507
